FAERS Safety Report 19388105 (Version 1)
Quarter: 2021Q2

REPORT INFORMATION
  Report Type: Spontaneous
  Country: CA (occurrence: CA)
  Receive Date: 20210607
  Receipt Date: 20210607
  Transmission Date: 20210717
  Serious: Yes (Other)
  Sender: FDA-Public Use
  Company Number: None

PATIENT
  Age: 56 Year
  Sex: Female
  Weight: 126 kg

DRUGS (3)
  1. LORATADINE TABLETS [Suspect]
     Active Substance: LORATADINE
     Indication: HYPERSENSITIVITY
     Dosage: ?          QUANTITY:300 TABLET(S);?
     Route: 048
     Dates: start: 20201012, end: 20210606
  2. BENTADERM [Concomitant]
  3. BENADRYL [Concomitant]
     Active Substance: DIPHENHYDRAMINE HYDROCHLORIDE

REACTIONS (8)
  - Drug ineffective [None]
  - Product expiration date issue [None]
  - Rash pruritic [None]
  - Hypersensitivity [None]
  - Product formulation issue [None]
  - Product lot number issue [None]
  - Urticaria [None]
  - Sneezing [None]

NARRATIVE: CASE EVENT DATE: 20210606
